FAERS Safety Report 21006791 (Version 1)
Quarter: 2022Q2

REPORT INFORMATION
  Report Type: Spontaneous
  Country: CA (occurrence: CA)
  Receive Date: 20220625
  Receipt Date: 20220625
  Transmission Date: 20220721
  Serious: Yes (Other)
  Sender: FDA-Public Use
  Company Number: CA-ABBVIE-22K-028-4444023-00

PATIENT
  Age: 43 Year
  Sex: Female

DRUGS (5)
  1. HUMIRA [Suspect]
     Active Substance: ADALIMUMAB
     Indication: Psoriasis
     Route: 058
  2. XELJANZ [Suspect]
     Active Substance: TOFACITINIB CITRATE
     Indication: Colitis ulcerative
     Route: 048
     Dates: start: 20220419
  3. REMICADE [Suspect]
     Active Substance: INFLIXIMAB
     Indication: Product used for unknown indication
     Route: 065
  4. CODEINE [Suspect]
     Active Substance: CODEINE
     Indication: Product used for unknown indication
     Route: 065
  5. SHINGRIX [Concomitant]
     Active Substance: RECOMBINANT VARICELLA ZOSTER VIRUS (VZV) GLYCOPROTEIN E
     Indication: Immunisation
     Route: 030
     Dates: start: 20220606, end: 20220606

REACTIONS (9)
  - Haemorrhage [Not Recovered/Not Resolved]
  - Oral herpes [Unknown]
  - Liver disorder [Unknown]
  - Drug hypersensitivity [Unknown]
  - Drug hypersensitivity [Unknown]
  - Nausea [Unknown]
  - Psoriasis [Unknown]
  - Rectal haemorrhage [Recovered/Resolved]
  - Arthralgia [Unknown]

NARRATIVE: CASE EVENT DATE: 20220101
